FAERS Safety Report 22877342 (Version 2)
Quarter: 2024Q1

REPORT INFORMATION
  Report Type: Spontaneous
  Country: US (occurrence: US)
  Receive Date: 20230829
  Receipt Date: 20240206
  Transmission Date: 20240409
  Serious: Yes (Other)
  Sender: FDA-Public Use
  Company Number: US-SA-SAC20230828001087

PATIENT
  Age: 74 Year
  Sex: Male
  Weight: 95 kg

DRUGS (1)
  1. DUPIXENT [Suspect]
     Active Substance: DUPILUMAB
     Indication: Nasal polyps
     Dosage: 300MG , QOW
     Route: 058

REACTIONS (3)
  - Neck surgery [Unknown]
  - Musculoskeletal discomfort [Unknown]
  - Coronary artery bypass [Unknown]
